FAERS Safety Report 8056620-9 (Version None)
Quarter: 2012Q1

REPORT INFORMATION
  Report Type: 
  Country: None (occurrence: None)
  Receive Date: 20120119
  Receipt Date: 20120109
  Transmission Date: 20120608
  Serious: Yes (Other)
  Sender: FDA-Public Use
  Company Number: CHPA2012US000822

PATIENT
  Age: 49 Year
  Sex: Male

DRUGS (2)
  1. VALIUM [Concomitant]
     Indication: INSOMNIA
     Dosage: UNK, UNK
  2. EXCEDRIN PM [Suspect]
     Indication: INSOMNIA
     Dosage: 1 DF, QD
     Route: 048
     Dates: start: 20110601, end: 20110101

REACTIONS (2)
  - UNDERDOSE [None]
  - URINARY TRACT INFECTION [None]
